FAERS Safety Report 7239548-3 (Version None)
Quarter: 2011Q1

REPORT INFORMATION
  Report Type: 
  Country: None (occurrence: None)
  Receive Date: 20110121
  Receipt Date: 20100126
  Transmission Date: 20110831
  Serious: No
  Sender: FDA-Public Use
  Company Number: US-PFIZER INC-2009315505

PATIENT
  Sex: Female
  Weight: 64.9 kg

DRUGS (7)
  1. NITROFURANTOIN [Concomitant]
  2. NIFEDIPINE [Suspect]
     Dosage: 30 MG, 1X/DAY
     Dates: start: 20050101
  3. LIPITOR [Concomitant]
     Route: 048
  4. ACETYLSALICYLIC ACID [Concomitant]
     Dosage: 81 MG, 1X/DAY
     Route: 048
  5. ACETYLSALICYLIC ACID [Concomitant]
     Route: 048
  6. LIPITOR [Concomitant]
     Indication: BLOOD CHOLESTEROL INCREASED
     Dosage: 40 MG, 1X/DAY
     Route: 048
  7. NITROFURANTOIN [Concomitant]
     Dosage: 100 MG, 1X/DAY

REACTIONS (1)
  - DYSGEUSIA [None]
